FAERS Safety Report 8737716 (Version 3)
Quarter: 2013Q4

REPORT INFORMATION
  Report Type: Report from Study
  Country: JP (occurrence: JP)
  Receive Date: 20120822
  Receipt Date: 20131105
  Transmission Date: 20140711
  Serious: Yes (Hospitalization)
  Sender: FDA-Public Use
  Company Number: JP-009507513-1208JPN003948

PATIENT
  Age: 66 Year
  Sex: Female

DRUGS (3)
  1. COSOPT OPHTHALMIC SOLUTION [Suspect]
     Indication: GLAUCOMA
     Dosage: 1 GTT, BID
     Route: 047
     Dates: start: 20110713, end: 20111108
  2. AMARYL [Concomitant]
     Indication: DIABETES MELLITUS
     Dosage: 1 MG, QD
     Route: 048
  3. NELBIS [Concomitant]
     Indication: DIABETES MELLITUS
     Dosage: 250 MG, BID
     Route: 048

REACTIONS (1)
  - Adverse event [Unknown]
